FAERS Safety Report 5702663-7 (Version None)
Quarter: 2008Q2

REPORT INFORMATION
  Report Type: 
  Country: None (occurrence: None)
  Receive Date: 20080411
  Receipt Date: 20071213
  Transmission Date: 20081010
  Serious: No
  Sender: FDA-Public Use
  Company Number: US-ASTRAZENECA-2007UW28451

PATIENT
  Age: 69 Year
  Sex: Female
  Weight: 72.1 kg

DRUGS (2)
  1. TENORMIN [Suspect]
     Indication: HYPERTENSION
     Route: 048
  2. INSULIN [Concomitant]

REACTIONS (1)
  - MYALGIA [None]
